FAERS Safety Report 9321987 (Version 1)
Quarter: 2013Q2

REPORT INFORMATION
  Report Type: Spontaneous
  Country: DE (occurrence: ES)
  Receive Date: 20130531
  Receipt Date: 20130531
  Transmission Date: 20140414
  Serious: Yes (Death)
  Sender: FDA-Public Use
  Company Number: ES-FRI-1000045529

PATIENT
  Age: 83 Year
  Sex: Female

DRUGS (7)
  1. MEMANTINE [Suspect]
     Indication: DEMENTIA
     Dosage: 5 MG
     Route: 048
     Dates: start: 20121017, end: 20121019
  2. IBUPROFEN [Suspect]
     Indication: EAR PAIN
     Dosage: 1800 MG
     Route: 048
     Dates: start: 20121017, end: 20121019
  3. HYDROCHLOROTHIAZIDE [Suspect]
     Dosage: 12.5 MG
     Route: 048
     Dates: start: 20120919, end: 20121019
  4. ENALAPRIL MALEATE [Suspect]
     Indication: HYPERTENSION
     Dosage: 20 MG
     Route: 048
     Dates: start: 20120919, end: 20121019
  5. EXELON [Suspect]
     Indication: DEMENTIA
     Route: 048
     Dates: start: 20121004, end: 20121019
  6. OTIX [Concomitant]
     Dates: start: 20121008, end: 20121019
  7. SINTROM [Concomitant]
     Dosage: 4 MG
     Route: 048
     Dates: start: 201112, end: 20121019

REACTIONS (1)
  - Pancreatitis acute [Fatal]
